FAERS Safety Report 6819684-3 (Version None)
Quarter: 2010Q2

REPORT INFORMATION
  Report Type: 
  Country: None (occurrence: None)
  Receive Date: 20100630
  Receipt Date: 20100617
  Transmission Date: 20101027
  Serious: Yes (Hospitalization)
  Sender: FDA-Public Use
  Company Number: 2009AC000089

PATIENT
  Age: 55 Year
  Sex: Female

DRUGS (85)
  1. DIGOXIN [Suspect]
     Dosage: 0.125 MG;QOD;PO
     Route: 048
  2. DIGOXIN [Suspect]
     Indication: CARDIOMYOPATHY
     Dosage: 0.25 MG;QD;PO
     Route: 048
     Dates: start: 19891019
  3. DIGOXIN [Suspect]
     Dosage: 0.125 MG;QD;PO
     Route: 048
     Dates: start: 20080401
  4. ACCUPRIL [Concomitant]
  5. COREG [Concomitant]
  6. NEPHROCAPS [Concomitant]
  7. EFFEXOR [Concomitant]
  8. AMBIEN [Concomitant]
  9. HYDROXYZINE [Concomitant]
  10. LORCET-HD [Concomitant]
  11. PHOSLO [Concomitant]
  12. IMDUR [Concomitant]
  13. INSULIN [Concomitant]
  14. LIPITOR [Concomitant]
  15. BACTRIM [Concomitant]
  16. LASIX [Concomitant]
  17. IRON [Concomitant]
  18. ASPIRIN [Concomitant]
  19. NOVOLIN [Concomitant]
  20. MONOPRIL [Concomitant]
  21. HYDROCODONE BITARTRATE [Concomitant]
  22. OXYCODONE HCL [Concomitant]
  23. ASPIRIN [Concomitant]
  24. COREG [Concomitant]
  25. LISINOPRIL [Concomitant]
  26. EFFEXOR [Concomitant]
  27. BUMEX [Concomitant]
  28. IMDUR [Concomitant]
  29. NIFEDIPINE [Concomitant]
  30. LIPITOR [Concomitant]
  31. IRON [Concomitant]
  32. VITAMIN C [Concomitant]
  33. ZINC SULFATE [Concomitant]
  34. SPIRONOLACTONE [Concomitant]
  35. HYDROCHLOROTHIAZIDE [Concomitant]
  36. FOSINOPRIL [Concomitant]
  37. ASPIRIN [Concomitant]
  38. INSULIN [Concomitant]
  39. EFFEXOR [Concomitant]
  40. LISINOPRIL [Concomitant]
  41. LIPITOR [Concomitant]
  42. NIFEDIPINE [Concomitant]
  43. ISOSORBIDE [Concomitant]
  44. NOVOLIN [Concomitant]
  45. BUMETANIDE [Concomitant]
  46. NEXIUM [Concomitant]
  47. SELDANE [Concomitant]
  48. MOTRIN [Concomitant]
  49. CAPOTEN [Concomitant]
  50. GLIPIZIDE [Concomitant]
  51. SEPTRA [Concomitant]
  52. DARVOCET [Concomitant]
  53. ESTRADERM [Concomitant]
  54. ROCEPHIN [Concomitant]
  55. DEMEROL [Concomitant]
  56. VISTARIL [Concomitant]
  57. CLARITIN [Concomitant]
  58. PREMARIN [Concomitant]
  59. PRINIVIL [Concomitant]
  60. LOPRESSOR [Concomitant]
  61. LOVENOX [Concomitant]
  62. ASPIRIN [Concomitant]
  63. LOTREL [Concomitant]
  64. VALTREX [Concomitant]
  65. ACYCLOVIR [Concomitant]
  66. PERCOCET [Concomitant]
  67. ZOLOFT [Concomitant]
  68. ALDACTONE [Concomitant]
  69. CENESTIN [Concomitant]
  70. FERROUS GLUCONATE [Concomitant]
  71. NEXIUM [Concomitant]
  72. OXYCODONE HCL [Concomitant]
  73. ETHEZYME [Concomitant]
  74. AMOXICILLIN [Concomitant]
  75. HYDROCODONE BITARTRATE [Concomitant]
  76. SULFAMETHOXAZOLE [Concomitant]
  77. NITROGLYCERIN [Concomitant]
  78. TORADOL [Concomitant]
  79. DILAUDID [Concomitant]
  80. SULFAMETHOXAZOLE [Concomitant]
  81. AMITRIPTYLINE HYDROCHLORIDE [Concomitant]
  82. HYDROXYZINE [Concomitant]
  83. PROCRIT [Concomitant]
  84. ACCUPRIL [Concomitant]
  85. LORCET-HD [Concomitant]

REACTIONS (109)
  - ABDOMINAL DISTENSION [None]
  - ABDOMINAL PAIN UPPER [None]
  - ABSCESS [None]
  - ANAEMIA [None]
  - ARTHRALGIA [None]
  - ASTHENIA [None]
  - ATRIOVENTRICULAR BLOCK FIRST DEGREE [None]
  - BACTERAEMIA [None]
  - BLADDER PROLAPSE [None]
  - BLOOD GLUCOSE INCREASED [None]
  - BLOOD PRESSURE INCREASED [None]
  - BLOOD UREA INCREASED [None]
  - CARDIAC FAILURE CONGESTIVE [None]
  - CARDIAC VALVE DISEASE [None]
  - CARDIAC VENTRICULAR DISORDER [None]
  - CARDIOMEGALY [None]
  - CARDIOMYOPATHY [None]
  - CARPAL TUNNEL SYNDROME [None]
  - CELLULITIS [None]
  - CERVICOBRACHIAL SYNDROME [None]
  - CHEST PAIN [None]
  - CHOLECYSTITIS [None]
  - CHRONIC OBSTRUCTIVE PULMONARY DISEASE [None]
  - CONDITION AGGRAVATED [None]
  - CORONARY ARTERY DISEASE [None]
  - DECREASED APPETITE [None]
  - DEHYDRATION [None]
  - DEPRESSION [None]
  - DEVICE RELATED INFECTION [None]
  - DIABETES MELLITUS [None]
  - DIABETES MELLITUS INADEQUATE CONTROL [None]
  - DIABETIC FOOT [None]
  - DIALYSIS [None]
  - DIARRHOEA [None]
  - DIASTOLIC DYSFUNCTION [None]
  - DILATATION ATRIAL [None]
  - DILATATION VENTRICULAR [None]
  - DIZZINESS [None]
  - DYSLIPIDAEMIA [None]
  - DYSPEPSIA [None]
  - DYSPNOEA [None]
  - DYSURIA [None]
  - EJECTION FRACTION DECREASED [None]
  - ERYTHEMA [None]
  - FATIGUE [None]
  - FLANK PAIN [None]
  - FLUID RETENTION [None]
  - FRACTURE [None]
  - GANGRENE [None]
  - HAEMODIALYSIS [None]
  - HERPES ZOSTER [None]
  - HYPERLIPIDAEMIA [None]
  - HYPERTENSION [None]
  - HYPERVENTILATION [None]
  - HYPOAESTHESIA [None]
  - HYPOGLYCAEMIA [None]
  - INFECTION [None]
  - JOINT SWELLING [None]
  - LEFT ATRIAL DILATATION [None]
  - LEFT VENTRICULAR DYSFUNCTION [None]
  - LEFT VENTRICULAR HYPERTROPHY [None]
  - LEG AMPUTATION [None]
  - MITRAL VALVE INCOMPETENCE [None]
  - MULTIPLE INJURIES [None]
  - MUSCLE ABSCESS [None]
  - MUSCULAR WEAKNESS [None]
  - MUSCULOSKELETAL PAIN [None]
  - NAUSEA [None]
  - NECK PAIN [None]
  - NEUROPATHIC ARTHROPATHY [None]
  - OCCULT BLOOD POSITIVE [None]
  - OEDEMA [None]
  - OEDEMA PERIPHERAL [None]
  - OPERATIVE HAEMORRHAGE [None]
  - ORTHOSTATIC HYPOTENSION [None]
  - OSTEOARTHRITIS [None]
  - OSTEOMYELITIS [None]
  - PAIN [None]
  - PAIN IN EXTREMITY [None]
  - PALPITATIONS [None]
  - PARAESTHESIA [None]
  - PERICARDIAL EFFUSION [None]
  - PERIORBITAL OEDEMA [None]
  - PLEURITIC PAIN [None]
  - PRESYNCOPE [None]
  - PULMONARY HYPERTENSION [None]
  - PULMONARY VALVE INCOMPETENCE [None]
  - RASH ERYTHEMATOUS [None]
  - RENAL ARTERY STENOSIS [None]
  - RENAL FAILURE ACUTE [None]
  - RENAL FAILURE CHRONIC [None]
  - RESPIRATORY FAILURE [None]
  - RIGHT VENTRICULAR FAILURE [None]
  - ROAD TRAFFIC ACCIDENT [None]
  - SINUS TACHYCARDIA [None]
  - SINUSITIS [None]
  - SKIN ULCER [None]
  - STREPTOCOCCUS TEST POSITIVE [None]
  - SWELLING [None]
  - SYNCOPE [None]
  - THERAPEUTIC AGENT TOXICITY [None]
  - TRICUSPID VALVE INCOMPETENCE [None]
  - TYPE 1 DIABETES MELLITUS [None]
  - URINARY TRACT INFECTION [None]
  - VENTRICULAR HYPOKINESIA [None]
  - VOMITING [None]
  - WEIGHT INCREASED [None]
  - WHEEZING [None]
  - WOUND [None]
